FAERS Safety Report 9404702 (Version 1)
Quarter: 2013Q3

REPORT INFORMATION
  Report Type: Spontaneous
  Country: US (occurrence: None)
  Receive Date: 20130716
  Receipt Date: 20130716
  Transmission Date: 20140515
  Serious: Yes (Hospitalization)
  Sender: FDA-Public Use
  Company Number: None

PATIENT
  Age: 50 Year
  Sex: Female
  Weight: 80.74 kg

DRUGS (2)
  1. CAPZASIN [Suspect]
     Indication: ARTHRITIS
     Dosage: SMALL AMOUNT 1 TIME
     Route: 061
     Dates: start: 20130701, end: 20130702
  2. CAPZASIN [Suspect]
     Indication: PAIN
     Dosage: SMALL AMOUNT 1 TIME
     Route: 061
     Dates: start: 20130701, end: 20130702

REACTIONS (1)
  - Pain [None]
